FAERS Safety Report 13453773 (Version 1)
Quarter: 2017Q2

REPORT INFORMATION
  Report Type: Spontaneous
  Country: US (occurrence: US)
  Receive Date: 20170418
  Receipt Date: 20170418
  Transmission Date: 20170830
  Serious: No
  Sender: FDA-Public Use
  Company Number: US-ALLERGAN-1652687US

PATIENT

DRUGS (1)
  1. LUMIGAN [Suspect]
     Active Substance: BIMATOPROST
     Indication: GLAUCOMA
     Dosage: UNK
     Route: 047
     Dates: start: 201512, end: 201602

REACTIONS (7)
  - Neck pain [Not Recovered/Not Resolved]
  - Renal disorder [Unknown]
  - Muscle disorder [Not Recovered/Not Resolved]
  - Chromaturia [Unknown]
  - Urinary incontinence [Unknown]
  - Urine output increased [Unknown]
  - Headache [Recovered/Resolved]
